FAERS Safety Report 5328007-0 (Version None)
Quarter: 2007Q2

REPORT INFORMATION
  Report Type: 
  Country: None (occurrence: None)
  Receive Date: 20070517
  Receipt Date: 20070504
  Transmission Date: 20071010
  Serious: Yes (Hospitalization)
  Sender: FDA-Public Use
  Company Number: DE-SHR-DE-2006-035930

PATIENT
  Age: 42 Year

DRUGS (1)
  1. BETASERON [Suspect]
     Indication: RELAPSING-REMITTING MULTIPLE SCLEROSIS
     Dosage: 8 OR 16 MIU, EVERY 2D
     Route: 058
     Dates: start: 20050515

REACTIONS (1)
  - DEAFNESS NEUROSENSORY [None]
